FAERS Safety Report 7506635-1 (Version None)
Quarter: 2011Q2

REPORT INFORMATION
  Report Type: 
  Country: None (occurrence: None)
  Receive Date: 20110526
  Receipt Date: 20110512
  Transmission Date: 20111010
  Serious: Yes (Hospitalization)
  Sender: FDA-Public Use
  Company Number: FR-JNJFOC-20110402677

PATIENT
  Age: 27 Year
  Sex: Female

DRUGS (13)
  1. REMICADE [Suspect]
     Indication: CROHN'S DISEASE
     Route: 042
     Dates: start: 20100325
  2. PENTASA [Suspect]
     Route: 048
     Dates: start: 20090615, end: 20100623
  3. ENTOCORT EC [Concomitant]
     Indication: PRODUCT USED FOR UNKNOWN INDICATION
     Route: 048
     Dates: start: 20091219, end: 20100325
  4. ENTOCORT EC [Concomitant]
     Route: 048
     Dates: start: 20090715, end: 20091013
  5. REMICADE [Suspect]
     Route: 042
     Dates: start: 20100827, end: 20100827
  6. ENTOCORT EC [Concomitant]
     Route: 048
     Dates: start: 20091014, end: 20091218
  7. PREDNISOLONE [Concomitant]
     Route: 048
     Dates: start: 20100325, end: 20100407
  8. HYDROCORTISONE [Concomitant]
     Indication: PRODUCT USED FOR UNKNOWN INDICATION
     Dosage: END DATE: MAY-2010
     Route: 048
     Dates: start: 20100506
  9. PREDNISOLONE [Concomitant]
     Indication: PRODUCT USED FOR UNKNOWN INDICATION
     Dosage: THEN DECREASED TO 5 MG EVERY 5 DAYS
     Route: 048
     Dates: start: 20100408
  10. PENTASA [Suspect]
     Indication: ILL-DEFINED DISORDER
     Route: 048
     Dates: start: 20100624, end: 20100927
  11. CALCIUM CARBONATE [Concomitant]
     Indication: PRODUCT USED FOR UNKNOWN INDICATION
     Route: 048
     Dates: start: 20100325
  12. FLUINDIONE [Concomitant]
     Indication: PRODUCT USED FOR UNKNOWN INDICATION
     Route: 048
     Dates: start: 20100325
  13. PENTASA [Suspect]
     Route: 048
     Dates: start: 20100928

REACTIONS (1)
  - SYSTEMIC LUPUS ERYTHEMATOSUS [None]
